FAERS Safety Report 5167216-0 (Version None)
Quarter: 2006Q4

REPORT INFORMATION
  Report Type: 
  Country: None (occurrence: None)
  Receive Date: 20061129
  Receipt Date: 20061120
  Transmission Date: 20070319
  Serious: Yes (Hospitalization, Disabling)
  Sender: FDA-Public Use
  Company Number: S06-FRA-00803-01

PATIENT
  Age: 65 Year
  Sex: Male
  Weight: 80 kg

DRUGS (5)
  1. SEROPLEX (ESCITALOPRAM) [Suspect]
     Indication: DEPRESSION
     Dosage: 10 MG QD PO
     Route: 048
     Dates: start: 20051206, end: 20051210
  2. SEROPRAM (CITALORPAM HYDROBROMIDE) [Concomitant]
  3. DEPAKOTE [Concomitant]
  4. LEPTICUR (TROPATEPINE HYDROCHLORIDE) [Concomitant]
  5. SULFARLEM (ANETHOLE TRITHIONE) [Concomitant]

REACTIONS (7)
  - DIZZINESS [None]
  - GENERAL PHYSICAL HEALTH DETERIORATION [None]
  - LEUKOENCEPHALOPATHY [None]
  - MOTOR DYSFUNCTION [None]
  - SPEECH DISORDER [None]
  - SYNCOPE [None]
  - VIRAL INFECTION [None]
